FAERS Safety Report 5672038-8 (Version None)
Quarter: 2008Q1

REPORT INFORMATION
  Report Type: 
  Country: None (occurrence: None)
  Receive Date: 20080314
  Receipt Date: 20080311
  Transmission Date: 20080703
  Serious: Yes (Hospitalization)
  Sender: FDA-Public Use
  Company Number: 2007SP011729

PATIENT
  Age: 49 Year
  Sex: Male
  Weight: 64 kg

DRUGS (4)
  1. PEG-INTRON [Suspect]
     Indication: HEPATITIS C
     Dosage: 120 MCG; QW; SC
     Route: 058
     Dates: start: 20060829, end: 20070605
  2. REBETOL [Suspect]
     Indication: HEPATITIS C
     Dosage: 800 MG; PO
     Route: 048
     Dates: start: 20060829, end: 20070605
  3. JUVELA [Concomitant]
  4. MYSLEE [Concomitant]

REACTIONS (5)
  - ANOREXIA [None]
  - DIABETIC KETOACIDOSIS [None]
  - DIARRHOEA [None]
  - PANCREATITIS ACUTE [None]
  - VOMITING [None]
